FAERS Safety Report 9759605 (Version 1)
Quarter: 2013Q4

REPORT INFORMATION
  Report Type: Spontaneous
  Country: US (occurrence: None)
  Receive Date: 20131212
  Receipt Date: 20131212
  Transmission Date: 20140711
  Serious: Yes (Other)
  Sender: FDA-Public Use
  Company Number: 2059649

PATIENT
  Age: 45 Year
  Sex: Male

DRUGS (6)
  1. METHOTREXATE [Suspect]
     Indication: PYODERMA GANGRENOSUM
  2. INFLIXIMAB [Concomitant]
  3. ADALIMUMAB [Concomitant]
  4. ANAKINRA [Concomitant]
  5. CORTICOSTEROIDS [Concomitant]
  6. CYCLOSPORINE [Concomitant]

REACTIONS (3)
  - Renal failure [None]
  - Pyoderma gangrenosum [None]
  - Condition aggravated [None]
